FAERS Safety Report 6882670-1 (Version None)
Quarter: 2010Q3

REPORT INFORMATION
  Report Type: 
  Country: None (occurrence: None)
  Receive Date: 20100729
  Receipt Date: 20100726
  Transmission Date: 20110219
  Serious: Yes (Other)
  Sender: FDA-Public Use
  Company Number: AT-ROCHE-714053

PATIENT
  Sex: Female

DRUGS (2)
  1. AVASTIN [Suspect]
     Dosage: RECEIVED TWO CYCLES.
     Route: 065
  2. MYOCET [Concomitant]
     Dosage: RECEIVED TWO CYCLES.

REACTIONS (1)
  - SPLENIC INFARCTION [None]
